FAERS Safety Report 6743197-0 (Version None)
Quarter: 2010Q2

REPORT INFORMATION
  Report Type: 
  Country: None (occurrence: None)
  Receive Date: 20100527
  Receipt Date: 20100524
  Transmission Date: 20101027
  Serious: Yes (Hospitalization)
  Sender: FDA-Public Use
  Company Number: US-TEVA-235583USA

PATIENT
  Age: 78 Year
  Sex: Female

DRUGS (1)
  1. FENTANYL CITRATE [Suspect]
     Indication: PAIN
     Route: 062
     Dates: start: 20090101

REACTIONS (3)
  - DEHYDRATION [None]
  - HEART RATE IRREGULAR [None]
  - LETHARGY [None]
